FAERS Safety Report 21735639 (Version 4)
Quarter: 2023Q1

REPORT INFORMATION
  Report Type: Report from Study
  Country: CH (occurrence: CH)
  Receive Date: 20221215
  Receipt Date: 20230208
  Transmission Date: 20230418
  Serious: Yes (Hospitalization)
  Sender: FDA-Public Use
  Company Number: CH-GILEAD-2022-0608341

PATIENT
  Sex: Female
  Weight: 35 kg

DRUGS (2)
  1. SACITUZUMAB GOVITECAN [Suspect]
     Active Substance: SACITUZUMAB GOVITECAN
     Indication: Transitional cell cancer of the renal pelvis and ureter
     Dosage: 10 MG/KG D1 AND D8 OF 21 DAYS CYCLE
     Route: 042
     Dates: start: 20221117, end: 20230126
  2. GLUCOSALIN [Concomitant]
     Indication: Dehydration
     Dosage: UNK
     Dates: start: 20230110

REACTIONS (2)
  - Ileus [Not Recovered/Not Resolved]
  - Ileus [Recovered/Resolved]

NARRATIVE: CASE EVENT DATE: 20221202
